FAERS Safety Report 6683836-6 (Version None)
Quarter: 2010Q2

REPORT INFORMATION
  Report Type: 
  Country: None (occurrence: None)
  Receive Date: 20100416
  Receipt Date: 20100408
  Transmission Date: 20101027
  Serious: Yes (Hospitalization, Other)
  Sender: FDA-Public Use
  Company Number: CA-BAYER-201015430NA

PATIENT
  Age: 41 Year
  Sex: Female
  Weight: 68 kg

DRUGS (1)
  1. YASMIN [Suspect]
     Indication: CONTRACEPTION
     Dosage: ACCORDING TO SOURCE DOCUMENT THERAPY DURATION: 10 MONTHS. FREQUENCY: CYCLICAL
     Route: 065
     Dates: end: 20090401

REACTIONS (2)
  - GALLBLADDER DISORDER [None]
  - GALLBLADDER PAIN [None]
